FAERS Safety Report 19360680 (Version 1)
Quarter: 2021Q2

REPORT INFORMATION
  Report Type: Report from Study
  Country: None (occurrence: US)
  Receive Date: 20210602
  Receipt Date: 20210602
  Transmission Date: 20210717
  Serious: No
  Sender: FDA-Public Use
  Company Number: US-MDD US OPERATIONS-MDD202010-001961

PATIENT
  Age: 73 Year

DRUGS (2)
  1. APOKYN [Suspect]
     Active Substance: APOMORPHINE HYDROCHLORIDE
     Dates: start: 20200927, end: 20200927
  2. APOKYN [Suspect]
     Active Substance: APOMORPHINE HYDROCHLORIDE
     Indication: PARKINSON^S DISEASE
     Dosage: NOT PROVIDED
     Dates: start: 2020

REACTIONS (2)
  - Hallucination, visual [Recovered/Resolved]
  - Fatigue [Recovered/Resolved]

NARRATIVE: CASE EVENT DATE: 20200927
